FAERS Safety Report 13325545 (Version 1)
Quarter: 2017Q1

REPORT INFORMATION
  Report Type: Report from Study
  Country: ES (occurrence: ES)
  Receive Date: 20170310
  Receipt Date: 20170310
  Transmission Date: 20170428
  Serious: Yes (Death, Life-Threatening, Hospitalization, Other)
  Sender: FDA-Public Use
  Company Number: ES-ELI_LILLY_AND_COMPANY-ES201610002367

PATIENT
  Age: 64 Year
  Sex: Male
  Weight: 70 kg

DRUGS (26)
  1. PEMETREXED [Suspect]
     Active Substance: PEMETREXED
     Dosage: 500 MG/M2, UNK
     Route: 042
     Dates: start: 20160317, end: 20160317
  2. PARACETAMOL [Concomitant]
     Active Substance: ACETAMINOPHEN
     Indication: PYREXIA
     Dosage: UNK
     Dates: start: 20160313
  3. LIDOCAINE. [Concomitant]
     Active Substance: LIDOCAINE
     Indication: STOMATITIS
     Dosage: UNK
     Dates: start: 20160418
  4. CARBOPLATIN. [Suspect]
     Active Substance: CARBOPLATIN
     Dosage: 6 MG/ML X MIN X [CRCL (ML/MIN) +25
     Route: 042
     Dates: start: 20160407, end: 20160407
  5. NOLOTIL                            /06276702/ [Concomitant]
     Active Substance: METAMIZOLE MAGNESIUM
     Indication: PYREXIA
     Dosage: UNK
     Dates: start: 20160406
  6. FENTANYL. [Concomitant]
     Active Substance: FENTANYL
     Indication: PRODUCT USED FOR UNKNOWN INDICATION
     Dosage: 12 MG/72 HR
  7. CARBOPLATIN. [Suspect]
     Active Substance: CARBOPLATIN
     Indication: NON-SMALL CELL LUNG CANCER
     Dosage: 6 MG/ML X MIN X [CRCL (ML/MIN) +25
     Route: 042
     Dates: start: 20160224, end: 20160224
  8. ABSTRAL [Concomitant]
     Active Substance: FENTANYL CITRATE
     Indication: INTERVERTEBRAL DISC DEGENERATION
     Dosage: UNK
     Dates: start: 201601
  9. BLOOD, WHOLE [Concomitant]
     Active Substance: WHOLE BLOOD
     Indication: ASTHENIA
     Dosage: UNK
     Dates: start: 20160417, end: 20160417
  10. NISTATINA [Concomitant]
     Active Substance: NYSTATIN
     Indication: STOMATITIS
     Dosage: UNK
     Dates: start: 20160416
  11. BOI-K ASPARTICO [Concomitant]
     Active Substance: ASPARTIC ACID\POTASSIUM ASCORBATE
     Dosage: UNK
     Dates: start: 20160422
  12. HYDROCORTISONE. [Concomitant]
     Active Substance: HYDROCORTISONE
     Indication: ANAEMIA
  13. CARBOPLATIN. [Suspect]
     Active Substance: CARBOPLATIN
     Dosage: 6 MG/ML X MIN X [CRCL (ML/MIN) +25
     Route: 042
     Dates: start: 20160317, end: 20160317
  14. BLOOD, WHOLE [Concomitant]
     Active Substance: WHOLE BLOOD
     Indication: NEUTROPENIA
     Dosage: UNK
     Dates: start: 20160415, end: 20160415
  15. BLOOD, WHOLE [Concomitant]
     Active Substance: WHOLE BLOOD
     Dosage: UNK
     Dates: start: 20160506, end: 20160506
  16. NISTATINA [Concomitant]
     Active Substance: NYSTATIN
     Dosage: UNK
     Dates: start: 20160420, end: 20160425
  17. BICARBONATE [Concomitant]
     Active Substance: BICARBONATE ION
     Dosage: UNK
     Dates: start: 20160429
  18. HYDROCORTISONE. [Concomitant]
     Active Substance: HYDROCORTISONE
     Indication: RENAL FAILURE
     Dosage: UNK
     Dates: start: 20160420
  19. PEMETREXED [Suspect]
     Active Substance: PEMETREXED
     Dosage: 500 MG/M2, UNK
     Route: 042
     Dates: start: 20160407, end: 20160407
  20. OMEPRAZOL                          /00661201/ [Concomitant]
     Active Substance: OMEPRAZOLE
     Indication: PRODUCT USED FOR UNKNOWN INDICATION
     Dosage: UNK
     Dates: start: 20160426
  21. MST                                /00036302/ [Concomitant]
     Active Substance: MORPHINE SULFATE
     Indication: INTERVERTEBRAL DISC DEGENERATION
     Dosage: UNK
     Dates: start: 201601
  22. FLUDROCORTISONE [Concomitant]
     Active Substance: FLUDROCORTISONE
     Indication: RENAL FAILURE
     Dosage: UNK
     Dates: start: 20160426
  23. MORPHINE [Concomitant]
     Active Substance: MORPHINE
     Indication: PRODUCT USED FOR UNKNOWN INDICATION
     Dosage: UNK
     Dates: start: 20160422, end: 20160429
  24. PEMETREXED [Suspect]
     Active Substance: PEMETREXED
     Indication: NON-SMALL CELL LUNG CANCER
     Dosage: 500 MG/M2, UNK
     Route: 042
     Dates: start: 20160224, end: 20160224
  25. SPIRIVA [Concomitant]
     Active Substance: TIOTROPIUM BROMIDE MONOHYDRATE
     Indication: CHRONIC OBSTRUCTIVE PULMONARY DISEASE
     Dosage: UNK
     Dates: start: 2015
  26. LORMETAZEPAM [Concomitant]
     Active Substance: LORMETAZEPAM
     Indication: INSOMNIA
     Dosage: UNK

REACTIONS (11)
  - Thrombocytopenia [Not Recovered/Not Resolved]
  - Renal failure [Unknown]
  - Neutropenia [Recovered/Resolved]
  - Dehydration [Unknown]
  - Lower respiratory tract infection [Unknown]
  - Pyrexia [Recovered/Resolved]
  - Subarachnoid haemorrhage [Fatal]
  - Diarrhoea [Unknown]
  - Pyrexia [Recovered/Resolved]
  - Anaemia [Unknown]
  - Febrile neutropenia [Recovered/Resolved]

NARRATIVE: CASE EVENT DATE: 201602
